FAERS Safety Report 8203939-4 (Version None)
Quarter: 2012Q1

REPORT INFORMATION
  Report Type: 
  Country: None (occurrence: None)
  Receive Date: 20120313
  Receipt Date: 20120305
  Transmission Date: 20120608
  Serious: Yes (Other)
  Sender: FDA-Public Use
  Company Number: US-US-EMD SERONO, INC.-7011820

PATIENT
  Sex: Male
  Weight: 88 kg

DRUGS (3)
  1. REBIF [Suspect]
     Route: 058
     Dates: start: 20110614
  2. REBIF [Suspect]
     Indication: MULTIPLE SCLEROSIS
     Route: 058
     Dates: start: 20020801, end: 20071201
  3. STEROIDS [Suspect]
     Indication: MULTIPLE SCLEROSIS
     Route: 048
     Dates: end: 20070101

REACTIONS (6)
  - BACK PAIN [None]
  - DIABETES MELLITUS [None]
  - FALL [None]
  - PERONEAL NERVE PALSY [None]
  - VISUAL ACUITY REDUCED [None]
  - HYPOAESTHESIA [None]
